FAERS Safety Report 6275958-9 (Version None)
Quarter: 2009Q3

REPORT INFORMATION
  Report Type: 
  Country: None (occurrence: None)
  Receive Date: 20090720
  Receipt Date: 20090709
  Transmission Date: 20100115
  Serious: Yes (Hospitalization)
  Sender: FDA-Public Use
  Company Number: GXKR2009US07415

PATIENT
  Age: 50 Year
  Sex: Female

DRUGS (10)
  1. LAMOTRIGINE [Suspect]
     Indication: BIPOLAR DISORDER
     Dosage: 25 MG/DAY; 25 MG/DAY, ORAL
     Route: 048
  2. LEVOTHYROXINE SODIUM [Concomitant]
  3. LITHIUM CARBONATE [Concomitant]
  4. DILTIAZEM [Concomitant]
  5. CLONAZEPAM [Concomitant]
  6. ZOLPIDEM [Concomitant]
  7. RISPERIDONE [Concomitant]
  8. OXYCODONE HCL [Concomitant]
  9. DIPHENHYDRAMINE HCL [Concomitant]
  10. TYLENOL [Concomitant]

REACTIONS (8)
  - DYSPNOEA [None]
  - MENINGITIS ASEPTIC [None]
  - MUSCULOSKELETAL STIFFNESS [None]
  - MYALGIA [None]
  - PHOTOPHOBIA [None]
  - PYREXIA [None]
  - TACHYCARDIA [None]
  - WHITE BLOOD CELL COUNT INCREASED [None]
